FAERS Safety Report 8528600-8 (Version None)
Quarter: 2012Q3

REPORT INFORMATION
  Report Type: 
  Country: None (occurrence: None)
  Receive Date: 20120723
  Receipt Date: 20120711
  Transmission Date: 20120928
  Serious: Yes (Hospitalization)
  Sender: FDA-Public Use
  Company Number: US-BIOGENIDEC-2012BI025225

PATIENT
  Age: 45 Year
  Sex: Female

DRUGS (2)
  1. AVONEX [Suspect]
     Indication: MULTIPLE SCLEROSIS
     Route: 030
     Dates: start: 20090105, end: 20120601
  2. AVONEX [Suspect]
     Route: 030
     Dates: start: 20120701

REACTIONS (2)
  - APPENDICITIS [None]
  - ANXIETY [None]
